FAERS Safety Report 4893142-8 (Version None)
Quarter: 2005Q4

REPORT INFORMATION
  Report Type: 
  Country: None (occurrence: None)
  Receive Date: 20051223
  Receipt Date: 20050921
  Transmission Date: 20060501
  Serious: Yes (Hospitalization)
  Sender: FDA-Public Use
  Company Number: PHEH2005US10497

PATIENT
  Age: 25 Year
  Sex: Male

DRUGS (2)
  1. CLOZARIL [Suspect]
     Dosage: 450 MG, QD ; 12.5 MG 25 MG
     Dates: start: 20050618, end: 20050626
  2. ACETAMINOPHEN [Suspect]

REACTIONS (2)
  - HYPOTENSION [None]
  - OVERDOSE [None]
